FAERS Safety Report 5191374-5 (Version None)
Quarter: 2006Q4

REPORT INFORMATION
  Report Type: 
  Country: None (occurrence: None)
  Receive Date: 20061226
  Receipt Date: 20030108
  Transmission Date: 20070319
  Serious: Yes (Hospitalization)
  Sender: FDA-Public Use
  Company Number: FR-MERCK-0301USA00645

PATIENT
  Age: 32 Year
  Sex: Male

DRUGS (4)
  1. MODURETIC 5-50 [Suspect]
     Route: 048
  2. TOPIRAMATE [Suspect]
     Route: 048
     Dates: start: 20010801, end: 20021015
  3. TOPIRAMATE [Suspect]
     Route: 048
     Dates: start: 20010115, end: 20010801
  4. DI-HYDAN [Suspect]
     Route: 048
     Dates: start: 19900615

REACTIONS (8)
  - AMNESIA [None]
  - COGNITIVE DISORDER [None]
  - DEPRESSION [None]
  - DEPRESSIVE SYMPTOM [None]
  - FATIGUE [None]
  - SELF-INJURIOUS IDEATION [None]
  - SUICIDAL IDEATION [None]
  - WEIGHT DECREASED [None]
